FAERS Safety Report 4533568-5 (Version None)
Quarter: 2004Q4

REPORT INFORMATION
  Report Type: 
  Country: None (occurrence: None)
  Receive Date: 20041202
  Receipt Date: 20041118
  Transmission Date: 20050328
  Serious: No
  Sender: FDA-Public Use
  Company Number: 2004UW12686

PATIENT
  Age: 36 Year
  Sex: Male

DRUGS (4)
  1. CRESTOR [Suspect]
     Dosage: 10 MG PO
     Route: 048
     Dates: start: 20040101
  2. ACTOS [Suspect]
  3. ACTOS [Suspect]
     Dates: start: 20040419, end: 20040526
  4. ATACAND [Concomitant]

REACTIONS (1)
  - MYOPATHY [None]
